FAERS Safety Report 9928824 (Version 1)
Quarter: 2014Q1

REPORT INFORMATION
  Report Type: Spontaneous
  Country: FR (occurrence: FR)
  Receive Date: 20140227
  Receipt Date: 20140227
  Transmission Date: 20141002
  Serious: Yes (Hospitalization)
  Sender: FDA-Public Use
  Company Number: PHHY2014FR020309

PATIENT
  Age: 21 Month
  Sex: Female

DRUGS (1)
  1. OMNITROPE [Suspect]
     Indication: GROWTH HORMONE DEFICIENCY
     Dosage: 0.7 IU/KG, UNK
     Route: 058
     Dates: start: 20090310

REACTIONS (2)
  - Stereotypy [Unknown]
  - Mutism [Unknown]
